FAERS Safety Report 5962407-0 (Version None)
Quarter: 2008Q4

REPORT INFORMATION
  Report Type: 
  Country: None (occurrence: None)
  Receive Date: 20081121
  Receipt Date: 20081118
  Transmission Date: 20090506
  Serious: Yes (Disabling)
  Sender: FDA-Public Use
  Company Number: NO-MERCK-0809NOR00006

PATIENT
  Age: 71 Year
  Sex: Male

DRUGS (9)
  1. ZOCOR [Suspect]
     Route: 048
     Dates: start: 20071114
  2. DOXAZOSIN MESYLATE [Concomitant]
     Route: 048
     Dates: start: 20021121
  3. ASPIRIN AND MAGNESIUM OXIDE [Concomitant]
     Route: 048
  4. BUMETANIDE [Concomitant]
     Route: 048
     Dates: start: 20070512
  5. METOPROLOL TARTRATE [Concomitant]
     Route: 048
     Dates: start: 19991016
  6. AMLODIPINE BESYLATE [Concomitant]
     Route: 048
     Dates: start: 20070512
  7. CLOPIDOGREL BISULFATE [Concomitant]
     Route: 048
     Dates: start: 20060311
  8. CANDESARTAN CILEXETIL AND HYDROCHLOROTHIAZIDE [Suspect]
     Indication: HYPERTENSION
     Route: 048
     Dates: start: 20060202, end: 20080828
  9. ESOMEPRAZOLE MAGNESIUM [Concomitant]
     Route: 048
     Dates: start: 20020101

REACTIONS (1)
  - INTERSTITIAL LUNG DISEASE [None]
